FAERS Safety Report 7042022-0 (Version None)
Quarter: 2010Q4

REPORT INFORMATION
  Report Type: 
  Country: None (occurrence: None)
  Receive Date: 20101013
  Receipt Date: 20100630
  Transmission Date: 20110411
  Serious: No
  Sender: FDA-Public Use
  Company Number: US-ASTRAZENECA-2010SE23496

PATIENT
  Age: 81 Year
  Sex: Male
  Weight: 79.4 kg

DRUGS (8)
  1. SYMBICORT [Suspect]
     Indication: ASTHMA
     Dosage: 80/4.5 2 PUFFS
     Route: 055
     Dates: start: 20100421, end: 20100428
  2. SYMBICORT [Suspect]
     Indication: COUGH
     Dosage: 80/4.5 2 PUFFS
     Route: 055
     Dates: start: 20100421, end: 20100428
  3. SYMBICORT [Suspect]
     Dosage: 80/4.5 2 PUFFS TWICE DAILY
     Route: 055
     Dates: start: 20100509
  4. SYMBICORT [Suspect]
     Dosage: 80/4.5 2 PUFFS TWICE DAILY
     Route: 055
     Dates: start: 20100509
  5. VENTOLIN [Concomitant]
  6. CRESTOR [Concomitant]
     Indication: HYPERCHOLESTEROLAEMIA
  7. LISINOPRIL [Concomitant]
     Indication: HYPERTENSION
  8. NEXIUM [Concomitant]
     Indication: GASTROOESOPHAGEAL REFLUX DISEASE

REACTIONS (2)
  - BLOOD PRESSURE INADEQUATELY CONTROLLED [None]
  - DRUG DOSE OMISSION [None]
